FAERS Safety Report 13560143 (Version 1)
Quarter: 2017Q2

REPORT INFORMATION
  Report Type: Spontaneous
  Country: MX (occurrence: MX)
  Receive Date: 20170518
  Receipt Date: 20170518
  Transmission Date: 20170830
  Serious: Yes (Death, Other)
  Sender: FDA-Public Use
  Company Number: MX-BIOMARINAP-MX-2017-113993

PATIENT
  Age: 17 Year
  Sex: Male
  Weight: 27 kg

DRUGS (1)
  1. NAGLAZYME [Suspect]
     Active Substance: GALSULFASE
     Indication: PRODUCT USED FOR UNKNOWN INDICATION
     Dosage: 25 MG, QW
     Route: 042
     Dates: start: 20140409

REACTIONS (3)
  - Respiratory disorder [Unknown]
  - Cardiac arrest [Fatal]
  - Hernia [Unknown]

NARRATIVE: CASE EVENT DATE: 20170511
